FAERS Safety Report 10086929 (Version 3)
Quarter: 2014Q2

REPORT INFORMATION
  Report Type: Spontaneous
  Country: EG (occurrence: EG)
  Receive Date: 20140418
  Receipt Date: 20140616
  Transmission Date: 20141212
  Serious: Yes (Other)
  Sender: FDA-Public Use
  Company Number: EG-PFIZER INC-2014109034

PATIENT
  Age: 63 Year
  Sex: Female

DRUGS (7)
  1. LYRICA [Suspect]
     Indication: BACK PAIN
     Dosage: 75 MG, 1X/DAY BEFORE SLEEP
     Route: 048
  2. LYRICA [Suspect]
     Indication: SCIATICA
  3. ASPOCID [Concomitant]
     Dosage: 25 MG, 2X/DAY
  4. NITRO MACK [Concomitant]
     Dosage: 2.5 MG, 1X/DAY
  5. CONCOR [Concomitant]
     Dosage: 5 MG, 1X/DAY
  6. VASTAREL [Concomitant]
     Dosage: UNK
  7. EXAMIDE [Concomitant]
     Dosage: 10 MG, 1X/DAY

REACTIONS (4)
  - Depressed level of consciousness [Recovered/Resolved]
  - Tachycardia [Recovered/Resolved]
  - Somnolence [Recovered/Resolved]
  - Hyperhidrosis [Recovered/Resolved]
